FAERS Safety Report 5355611-6 (Version None)
Quarter: 2007Q2

REPORT INFORMATION
  Report Type: 
  Country: None (occurrence: None)
  Receive Date: 20070613
  Receipt Date: 20070608
  Transmission Date: 20071010
  Serious: Yes (Death)
  Sender: FDA-Public Use
  Company Number: A0655319A

PATIENT
  Age: 14 Year
  Sex: Male

DRUGS (1)
  1. ADVAIR DISKUS 100/50 [Suspect]
     Indication: ASTHMA
     Route: 055
     Dates: end: 20050603

REACTIONS (4)
  - DEATH [None]
  - INJURY [None]
  - RESPIRATORY ARREST [None]
  - SYNCOPE [None]
